FAERS Safety Report 8378463-9 (Version None)
Quarter: 2012Q2

REPORT INFORMATION
  Report Type: 
  Country: None (occurrence: None)
  Receive Date: 20120522
  Receipt Date: 20120215
  Transmission Date: 20120825
  Serious: No
  Sender: FDA-Public Use
  Company Number: US-ASTRAZENECA-2012SE10622

PATIENT
  Age: 53 Year
  Sex: Female

DRUGS (3)
  1. LIPITOR [Concomitant]
  2. PRILOSEC [Suspect]
     Indication: GASTROOESOPHAGEAL REFLUX DISEASE
     Route: 048
  3. PRILOSEC [Suspect]
     Route: 048

REACTIONS (5)
  - DYSPHAGIA [None]
  - DYSPHONIA [None]
  - OFF LABEL USE [None]
  - DRUG INEFFECTIVE [None]
  - THROAT IRRITATION [None]
